FAERS Safety Report 7737693-7 (Version None)
Quarter: 2011Q4

REPORT INFORMATION
  Report Type: 
  Country: None (occurrence: None)
  Receive Date: 20110908
  Receipt Date: 20110902
  Transmission Date: 20120403
  Serious: Yes (Other)
  Sender: FDA-Public Use
  Company Number: US-PFIZER INC-2011194800

PATIENT
  Sex: Female

DRUGS (3)
  1. EFFEXOR XR [Suspect]
     Dosage: UNK
     Dates: start: 20090401, end: 20100101
  2. TYLENOL PM [Suspect]
     Dosage: UNK
  3. EFFEXOR [Suspect]
     Dosage: UNK

REACTIONS (13)
  - SUICIDE ATTEMPT [None]
  - NAUSEA [None]
  - AGGRESSION [None]
  - WITHDRAWAL SYNDROME [None]
  - CHILD NEGLECT [None]
  - EMOTIONAL DISORDER [None]
  - THINKING ABNORMAL [None]
  - DEPRESSION [None]
  - DRUG INEFFECTIVE [None]
  - SUICIDAL IDEATION [None]
  - ABNORMAL BEHAVIOUR [None]
  - PANIC ATTACK [None]
  - NERVOUSNESS [None]
